FAERS Safety Report 7927845-5 (Version None)
Quarter: 2011Q4

REPORT INFORMATION
  Report Type: 
  Country: None (occurrence: None)
  Receive Date: 20111118
  Receipt Date: 20111118
  Transmission Date: 20120403
  Serious: Yes (Disabling)
  Sender: FDA-Public Use
  Company Number: None

PATIENT
  Sex: Female
  Weight: 95.707 kg

DRUGS (1)
  1. LEVONORGESTREL [Suspect]
     Indication: ENDOMETRIOSIS
     Dosage: 52MG
     Route: 015
     Dates: start: 20040501, end: 20090401

REACTIONS (8)
  - BACK PAIN [None]
  - DEVICE DISLOCATION [None]
  - ALOPECIA [None]
  - ABDOMINAL PAIN [None]
  - OVARIAN CYST [None]
  - UTERINE PERFORATION [None]
  - WEIGHT INCREASED [None]
  - HEADACHE [None]
